FAERS Safety Report 23356928 (Version 1)
Quarter: 2024Q1

REPORT INFORMATION
  Report Type: Spontaneous
  Country: BE (occurrence: BE)
  Receive Date: 20240102
  Receipt Date: 20240102
  Transmission Date: 20240410
  Serious: Yes (Death, Hospitalization)
  Sender: FDA-Public Use
  Company Number: BE-AMGEN-BELSP2023230732

PATIENT
  Age: 70 Year
  Sex: Male

DRUGS (5)
  1. TRASTUZUMAB [Suspect]
     Active Substance: TRASTUZUMAB
     Indication: Oesophageal adenocarcinoma
     Dosage: 6 MILLIGRAM/KILOGRAM, Q3WK
     Route: 065
  2. PREDNISONE [Concomitant]
     Active Substance: PREDNISONE
     Indication: Oesophageal adenocarcinoma
     Dosage: 1 MILLIGRAM/KILOGRAM, QD
     Route: 048
  3. FLUOROURACIL [Concomitant]
     Active Substance: FLUOROURACIL
     Indication: Oesophageal adenocarcinoma
     Dosage: 75 MILLIGRAM/SQ. METER (FOUR CYCLES)
     Route: 065
  4. OXALIPLATIN [Concomitant]
     Active Substance: OXALIPLATIN
     Indication: Oesophageal adenocarcinoma
     Dosage: 750 MILLIGRAM/SQ. METER (FOUR CYCLES)
     Route: 065
  5. DOCETAXEL [Concomitant]
     Active Substance: DOCETAXEL\DOCETAXEL ANHYDROUS
     Indication: Oesophageal adenocarcinoma
     Dosage: 75 MILLIGRAM/SQ. METER, Q2WK (FOUR CYCLES)
     Route: 065

REACTIONS (2)
  - Pneumocystis jirovecii infection [Fatal]
  - Myopathy [Unknown]
